FAERS Safety Report 6992160-3 (Version None)
Quarter: 2010Q3

REPORT INFORMATION
  Report Type: 
  Country: None (occurrence: None)
  Receive Date: 20100917
  Receipt Date: 20100813
  Transmission Date: 20110219
  Serious: Yes (Death, Other)
  Sender: FDA-Public Use
  Company Number: US-EISAI INC.-E7867-00170-SPO-US

PATIENT
  Age: 51 Year
  Sex: Female

DRUGS (1)
  1. GLIADEL [Suspect]
     Indication: GLIOSARCOMA
     Dosage: UNKNOWN
     Route: 018

REACTIONS (8)
  - BACK PAIN [None]
  - LUNG NEOPLASM [None]
  - MALIGNANT PLEURAL EFFUSION [None]
  - METASTASES TO LUNG [None]
  - PNEUMONIA [None]
  - RESPIRATORY DISTRESS [None]
  - RESPIRATORY FAILURE [None]
  - SEPSIS [None]
